FAERS Safety Report 26093844 (Version 1)
Quarter: 2025Q4

REPORT INFORMATION
  Report Type: Spontaneous
  Country: CA (occurrence: None)
  Receive Date: 20251126
  Receipt Date: 20251126
  Transmission Date: 20260118
  Serious: Yes (Disabling)
  Sender: FDA-CTU
  Company Number: None

PATIENT
  Age: 63 Year
  Sex: Male
  Weight: 75 kg

DRUGS (4)
  1. REPATHA [Suspect]
     Active Substance: EVOLOCUMAB
     Indication: Hypercholesterolaemia
     Dosage: OTHER FREQUENCY : EVERY 14 DAYS;?
     Route: 058
     Dates: start: 20251104, end: 20251118
  2. METOPROLOL [Concomitant]
     Active Substance: METOPROLOL
  3. TICAGRELOR [Concomitant]
     Active Substance: TICAGRELOR
  4. ASPIRIN [Concomitant]
     Active Substance: ASPIRIN

REACTIONS (4)
  - Hypoaesthesia [None]
  - Pain in extremity [None]
  - Balance disorder [None]
  - Gait disturbance [None]

NARRATIVE: CASE EVENT DATE: 20251121
